FAERS Safety Report 8953092 (Version 1)
Quarter: 2012Q4

REPORT INFORMATION
  Report Type: Report from Study
  Country: CA (occurrence: CA)
  Receive Date: 20121205
  Receipt Date: 20121205
  Transmission Date: 20130627
  Serious: Yes (Hospitalization, Disabling)
  Sender: FDA-Public Use
  Company Number: CA-JNJFOC-20121114044

PATIENT
  Age: 37 None
  Sex: Female
  Weight: 72.58 kg

DRUGS (2)
  1. STELARA [Suspect]
     Indication: PSORIASIS
     Dates: start: 201110
  2. STELARA [Suspect]
     Indication: PSORIASIS
     Dates: end: 201104

REACTIONS (2)
  - Neoplasm skin [Unknown]
  - Finger amputation [Unknown]
